FAERS Safety Report 5693006-6 (Version None)
Quarter: 2008Q2

REPORT INFORMATION
  Report Type: 
  Country: None (occurrence: None)
  Receive Date: 20080402
  Receipt Date: 20080402
  Transmission Date: 20081010
  Serious: Yes (Other)
  Sender: FDA-Public Use
  Company Number: None

PATIENT
  Sex: Female
  Weight: 70.3075 kg

DRUGS (2)
  1. CRESTOR [Suspect]
     Dosage: 1 DAY
  2. ADVIL [Suspect]
     Dosage: 1 EVERY FOUR TO SIX HRS

REACTIONS (1)
  - URINARY INCONTINENCE [None]
